FAERS Safety Report 17964278 (Version 2)
Quarter: 2020Q3

REPORT INFORMATION
  Report Type: Spontaneous
  Country: GB (occurrence: GB)
  Receive Date: 20200630
  Receipt Date: 20200908
  Transmission Date: 20201103
  Serious: Yes (Other)
  Sender: FDA-Public Use
  Company Number: GB-BAYER-2020-125284

PATIENT
  Age: 48 Year
  Sex: Female

DRUGS (7)
  1. MIRENA [Suspect]
     Active Substance: LEVONORGESTREL
     Indication: MENOPAUSE
     Route: 065
  2. EVOREL SEQUI [Suspect]
     Active Substance: ESTRADIOL\NORETHINDRONE ACETATE
     Indication: MENOPAUSE
     Dosage: UNK
     Route: 062
  3. EVOREL [ESTRADIOL] [Suspect]
     Active Substance: ESTRADIOL
     Indication: MENOPAUSE
     Dosage: 2 DF
     Route: 062
  4. SUMATRIPTAN. [Concomitant]
     Active Substance: SUMATRIPTAN
     Indication: MIGRAINE
     Dosage: UNK
     Route: 065
  5. SUMATRIPTAN. [Concomitant]
     Active Substance: SUMATRIPTAN
     Indication: MIGRAINE
     Route: 065
  6. MIRENA [Suspect]
     Active Substance: LEVONORGESTREL
     Indication: MENOPAUSE
     Dosage: 20 ?G PER DAY, CONTINUOUSLY
     Route: 015
  7. AMITRIPTYLINE [Concomitant]
     Active Substance: AMITRIPTYLINE
     Indication: MIGRAINE
     Dosage: UNK
     Route: 065

REACTIONS (7)
  - Off label use [Unknown]
  - Product use issue [Unknown]
  - Product supply issue [Unknown]
  - Arthralgia [Unknown]
  - Product quality issue [Unknown]
  - Depression suicidal [Unknown]
  - Myalgia [Unknown]

NARRATIVE: CASE EVENT DATE: 20200512
